FAERS Safety Report 19502492 (Version 1)
Quarter: 2021Q3

REPORT INFORMATION
  Report Type: Spontaneous
  Country: US (occurrence: US)
  Receive Date: 20210707
  Receipt Date: 20210707
  Transmission Date: 20211014
  Serious: No
  Sender: FDA-Public Use
  Company Number: US-UNITED THERAPEUTICS-UNT-2021-012572

PATIENT
  Age: 46 Year
  Sex: Female

DRUGS (2)
  1. REMODULIN [Suspect]
     Active Substance: TREPROSTINIL
     Indication: PULMONARY ARTERIAL HYPERTENSION
     Dosage: UNK, CONTINUING
     Route: 058
     Dates: start: 20171012
  2. REMODULIN [Suspect]
     Active Substance: TREPROSTINIL
     Dosage: 0.0169 ?G/KG, CONTINUING
     Route: 058

REACTIONS (3)
  - Infusion site discolouration [Unknown]
  - Infusion site warmth [Unknown]
  - Infusion site inflammation [Unknown]

NARRATIVE: CASE EVENT DATE: 20210628
